FAERS Safety Report 4444900-5 (Version None)
Quarter: 2004Q3

REPORT INFORMATION
  Report Type: 
  Country: None (occurrence: None)
  Receive Date: 20040909
  Receipt Date: 20040830
  Transmission Date: 20050211
  Serious: Yes (Hospitalization)
  Sender: FDA-Public Use
  Company Number: NL-GLAXOSMITHKLINE-B0344183A

PATIENT
  Age: 60 Year
  Sex: Female

DRUGS (2)
  1. BUPROPION HYDROCHLORIDE [Suspect]
     Indication: EX-SMOKER
     Dosage: 150MG PER DAY
     Route: 048
     Dates: start: 20040728, end: 20040803
  2. THYRAX [Concomitant]
     Indication: HYPOTHYROIDISM
     Dosage: .1MG PER DAY
     Dates: start: 20010101

REACTIONS (1)
  - PSORIASIS [None]
